FAERS Safety Report 23938648 (Version 2)
Quarter: 2024Q4

REPORT INFORMATION
  Report Type: Spontaneous
  Country: BE (occurrence: BE)
  Receive Date: 20240604
  Receipt Date: 20241220
  Transmission Date: 20250115
  Serious: Yes (Death)
  Sender: ELI LILLY AND COMPANY
  Company Number: BE-ELI_LILLY_AND_COMPANY-BE202405017567

PATIENT

DRUGS (1)
  1. RETEVMO [Suspect]
     Active Substance: SELPERCATINIB
     Indication: Lung neoplasm malignant
     Dosage: UNK UNK, UNKNOWN
     Route: 065

REACTIONS (1)
  - Cerebrovascular accident [Fatal]
